FAERS Safety Report 12216483 (Version 1)
Quarter: 2016Q1

REPORT INFORMATION
  Report Type: Spontaneous
  Country: US (occurrence: None)
  Receive Date: 20160328
  Receipt Date: 20160328
  Transmission Date: 20160526
  Serious: Yes (Life-Threatening)
  Sender: FDA-Public Use
  Company Number: None

PATIENT
  Age: 61 Year
  Sex: Female
  Weight: 62.5 kg

DRUGS (1)
  1. ISOSULFAN BLUE/POTASSIUM PHOSPHATE/SODIUM PHOSPHATE [Suspect]
     Active Substance: ISOSULFAN BLUE
     Indication: SURGERY
     Dates: start: 20160201, end: 20160201

REACTIONS (3)
  - Anaphylactic reaction [None]
  - Mouth swelling [None]
  - Swollen tongue [None]

NARRATIVE: CASE EVENT DATE: 20160201
